FAERS Safety Report 5124846-X (Version None)
Quarter: 2006Q4

REPORT INFORMATION
  Report Type: 
  Country: None (occurrence: None)
  Receive Date: 20061011
  Receipt Date: 20060929
  Transmission Date: 20070319
  Serious: Yes (Other)
  Sender: FDA-Public Use
  Company Number: US-ROCHE-465442

PATIENT
  Age: 23 Year
  Sex: Female

DRUGS (2)
  1. ACCUTANE [Suspect]
     Indication: ACNE
     Route: 048
     Dates: start: 19821215, end: 19830615
  2. DOXICYCLIN [Concomitant]
     Indication: CERVICITIS

REACTIONS (7)
  - ABDOMINAL PAIN [None]
  - CERVICITIS [None]
  - DRUG EXPOSURE BEFORE PREGNANCY [None]
  - PREGNANCY [None]
  - REPRODUCTIVE TRACT DISORDER [None]
  - THERAPY NON-RESPONDER [None]
  - VAGINAL HAEMORRHAGE [None]
